FAERS Safety Report 8623110-1 (Version None)
Quarter: 2012Q3

REPORT INFORMATION
  Report Type: 
  Country: None (occurrence: None)
  Receive Date: 20120827
  Receipt Date: 20120815
  Transmission Date: 20120928
  Serious: No
  Sender: FDA-Public Use
  Company Number: US-009507513-1208USA008188

PATIENT

DRUGS (6)
  1. PROTONIX [Concomitant]
     Dosage: UNK
  2. CHOLECALCIFEROL [Concomitant]
     Dosage: UNK
  3. FATTY ACIDS (UNSPECIFIED) [Concomitant]
     Dosage: UNK
  4. ZOLINZA [Suspect]
     Indication: MULTIPLE MYELOMA
     Dosage: 100 MG, BID
     Route: 048
     Dates: start: 20120713
  5. DEXAMETHASONE [Concomitant]
     Dosage: UNK
  6. QUEST ONCE A DAY MULTIPLE VITAMINS AND MINERALS [Concomitant]

REACTIONS (2)
  - DIARRHOEA [None]
  - MEDICATION RESIDUE [None]
